FAERS Safety Report 24302001 (Version 2)
Quarter: 2024Q3

REPORT INFORMATION
  Report Type: Spontaneous
  Country: RU (occurrence: RU)
  Receive Date: 20240910
  Receipt Date: 20240913
  Transmission Date: 20241017
  Serious: Yes (Other)
  Sender: BAYER
  Company Number: RU-BAYER-2024A127078

PATIENT
  Age: 24 Year
  Sex: Female

DRUGS (1)
  1. DROSPIRENONE\ETHINYL ESTRADIOL [Suspect]
     Active Substance: DROSPIRENONE\ETHINYL ESTRADIOL
     Dosage: UNK
     Route: 048
     Dates: start: 20240828, end: 20240903

REACTIONS (6)
  - Syncope [None]
  - Syncope [None]
  - Nausea [None]
  - Vomiting [None]
  - Diarrhoea [None]
  - Anxiety [None]
